FAERS Safety Report 10420549 (Version 1)
Quarter: 2014Q3

REPORT INFORMATION
  Report Type: Spontaneous
  Country: US (occurrence: None)
  Receive Date: 20140714
  Receipt Date: 20140714
  Transmission Date: 20150326
  Serious: No
  Sender: FDA-Public Use
  Company Number: 2014US003346

PATIENT
  Age: 81 Year
  Sex: Female

DRUGS (9)
  1. XANAX [Concomitant]
     Active Substance: ALPRAZOLAM
  2. ICLUSIG [Suspect]
     Active Substance: PONATINIB
     Indication: CHRONIC MYELOID LEUKAEMIA
     Route: 048
     Dates: start: 20140416
  3. NORCO (HYDROCODONE BITARTRATE, PARACETAMOL) [Concomitant]
  4. VITAMIN B2 (VITAMIN B2) [Concomitant]
  5. ACYCLOVIR (ACYCLOVIR) [Concomitant]
     Active Substance: ACYCLOVIR
  6. CELEXA [Concomitant]
     Active Substance: CITALOPRAM HYDROBROMIDE
  7. PREDNISONIE (PREDNISONE ACETATE) [Concomitant]
  8. ASPIRIN (ASPIRIN) [Concomitant]
     Active Substance: ASPIRIN
  9. SYNTHROID (LEVOTHYIROXINE SODIUM) [Concomitant]

REACTIONS (4)
  - Abdominal discomfort [None]
  - Chest pain [None]
  - Back pain [None]
  - Paraesthesia [None]
